FAERS Safety Report 6093615-9 (Version None)
Quarter: 2009Q1

REPORT INFORMATION
  Report Type: 
  Country: None (occurrence: None)
  Receive Date: 20090226
  Receipt Date: 20090213
  Transmission Date: 20090719
  Serious: Yes (Hospitalization)
  Sender: FDA-Public Use
  Company Number: PHNU2007DE04020

PATIENT
  Age: 73 Year
  Sex: Female

DRUGS (1)
  1. CORDINATE [Suspect]
     Dates: start: 20071101

REACTIONS (1)
  - ANGINA PECTORIS [None]
